FAERS Safety Report 14977704 (Version 3)
Quarter: 2019Q4

REPORT INFORMATION
  Report Type: Spontaneous
  Country: GB (occurrence: GB)
  Receive Date: 20180606
  Receipt Date: 20191122
  Transmission Date: 20200122
  Serious: Yes (Death, Other)
  Sender: FDA-Public Use
  Company Number: GB-TEVA-2018-GB-900025

PATIENT
  Age: 83 Year
  Sex: Male
  Weight: 62 kg

DRUGS (15)
  1. CALCIFEROL [Concomitant]
  2. CARBAMAZEPINE. [Concomitant]
     Active Substance: CARBAMAZEPINE
  3. LANSOPRAZOLE. [Concomitant]
     Active Substance: LANSOPRAZOLE
  4. LEVOTHYROXINE. [Concomitant]
     Active Substance: LEVOTHYROXINE
  5. FRESUBIN [Concomitant]
     Active Substance: AMINO ACIDS\DEXTROSE\ELECTROLYTES NOS\SOYBEAN OIL\VITAMINS
  6. MAXIJUL [Concomitant]
  7. ALENDRONIC ACID TABLETS [Suspect]
     Active Substance: ALENDRONIC ACID
     Indication: OSTEOPOROSIS
     Route: 048
     Dates: end: 20150129
  8. SERTRALINE [Concomitant]
     Active Substance: SERTRALINE HYDROCHLORIDE
  9. TRAZODONE [Concomitant]
     Active Substance: TRAZODONE HYDROCHLORIDE
  10. ALLOPURINOL. [Concomitant]
     Active Substance: ALLOPURINOL
  11. LORAZEPAM. [Concomitant]
     Active Substance: LORAZEPAM
  12. MEMANTINE. [Concomitant]
     Active Substance: MEMANTINE
  13. PARACETAMOL [Concomitant]
     Active Substance: ACETAMINOPHEN
  14. CO-DYDRAMOL [Concomitant]
     Active Substance: ACETAMINOPHEN\DIHYDROCODEINE
  15. CALOGEN [Concomitant]

REACTIONS (5)
  - Pneumonia aspiration [Fatal]
  - Dysphagia [Unknown]
  - Oral candidiasis [Unknown]
  - Mouth ulceration [Fatal]
  - Mastication disorder [Unknown]

NARRATIVE: CASE EVENT DATE: 20150127
